FAERS Safety Report 14155191 (Version 1)
Quarter: 2017Q4

REPORT INFORMATION
  Report Type: Spontaneous
  Country: FR (occurrence: FR)
  Receive Date: 20171103
  Receipt Date: 20171103
  Transmission Date: 20180321
  Serious: Yes (Death)
  Sender: FDA-Public Use
  Company Number: FR-BAYER-2017-206498

PATIENT
  Age: 48 Year
  Sex: Female

DRUGS (3)
  1. LEVOTHYROX [Suspect]
     Active Substance: LEVOTHYROXINE
     Indication: THYROIDECTOMY
     Dosage: 50MCG + 1/2 PILL 25 MCG (62.5MCG/DAY)
     Route: 048
  2. MIRENA [Suspect]
     Active Substance: LEVONORGESTREL
     Indication: CONTRACEPTION
     Dosage: 20 MCG/24HR, CONT
     Route: 015
     Dates: start: 2002, end: 20170814
  3. LEVOTHYROX [Suspect]
     Active Substance: LEVOTHYROXINE
     Indication: THYROIDECTOMY
     Dosage: 75MCG +1/2 MCG (87.5 MCG/DAY)
     Route: 048
     Dates: start: 20170512, end: 20170814

REACTIONS (5)
  - Night sweats [Fatal]
  - Paraesthesia [Fatal]
  - Asthenia [Fatal]
  - Pulmonary embolism [Fatal]
  - Pain in extremity [Fatal]

NARRATIVE: CASE EVENT DATE: 20170814
